FAERS Safety Report 14076268 (Version 1)
Quarter: 2017Q4

REPORT INFORMATION
  Report Type: Report from Study
  Country: CA (occurrence: CA)
  Receive Date: 20171011
  Receipt Date: 20171011
  Transmission Date: 20180321
  Serious: Yes (Other)
  Sender: FDA-Public Use
  Company Number: CA-JNJFOC-20171007050

PATIENT
  Age: 48 Year
  Sex: Female
  Weight: 55 kg

DRUGS (2)
  1. STELARA [Suspect]
     Active Substance: USTEKINUMAB
     Indication: PUSTULAR PSORIASIS
     Dosage: STRENGTH = 90 MG
     Route: 058
     Dates: start: 20170717
  2. STELARA [Suspect]
     Active Substance: USTEKINUMAB
     Indication: CROHN^S DISEASE
     Dosage: STRENGTH = 90 MG
     Route: 058
     Dates: start: 20170717

REACTIONS (1)
  - Infected fistula [Not Recovered/Not Resolved]

NARRATIVE: CASE EVENT DATE: 20170929
